FAERS Safety Report 8934806 (Version 1)
Quarter: 2012Q4

REPORT INFORMATION
  Report Type: 
  Country: US (occurrence: US)
  Receive Date: 20121129
  Receipt Date: 20121129
  Transmission Date: 20130627
  Serious: No
  Sender: FDA-Public Use
  Company Number: US-TEVA-370397USA

PATIENT
  Sex: Male
  Weight: 81.72 kg

DRUGS (2)
  1. ACTIQ [Suspect]
     Dosage: 600 microgram q6 hrs
     Route: 002
     Dates: start: 2006
  2. DURAGESIC [Concomitant]
     Route: 023

REACTIONS (3)
  - Tooth discolouration [Not Recovered/Not Resolved]
  - Dental caries [Not Recovered/Not Resolved]
  - Tooth loss [Not Recovered/Not Resolved]
